FAERS Safety Report 13588785 (Version 1)
Quarter: 2017Q2

REPORT INFORMATION
  Report Type: Spontaneous
  Country: JP (occurrence: JP)
  Receive Date: 20170529
  Receipt Date: 20170529
  Transmission Date: 20170830
  Serious: Yes (Death, Disabling, Other)
  Sender: FDA-Public Use
  Company Number: JP-009507513-1312JPN005323

PATIENT
  Age: 76 Year
  Sex: Female

DRUGS (1)
  1. MENESIT TABLETS - 100 [Suspect]
     Active Substance: CARBIDOPA\LEVODOPA
     Dosage: 100 MG, QD
     Route: 048
     Dates: start: 201110, end: 201201

REACTIONS (3)
  - Pneumonia [Fatal]
  - Mental impairment [Unknown]
  - Neuroleptic malignant syndrome [Fatal]
